FAERS Safety Report 10037350 (Version 3)
Quarter: 2014Q2

REPORT INFORMATION
  Report Type: Report from Study
  Country: JP (occurrence: JP)
  Receive Date: 20140326
  Receipt Date: 20140430
  Transmission Date: 20141212
  Serious: Yes (Hospitalization)
  Sender: FDA-Public Use
  Company Number: JP-OTSUKA-US-2014-10152

PATIENT
  Age: 58 Year
  Sex: Female

DRUGS (22)
  1. BLINDED OPC-14597 [Suspect]
     Indication: BIPOLAR I DISORDER
     Dosage: 30 MG MILLIGRAM(S), QD
     Route: 030
     Dates: start: 20140106, end: 20140122
  2. ARIPIPRAZOLE [Concomitant]
     Indication: BIPOLAR I DISORDER
     Dosage: 30 MG MILLIGRAM(S), QD
     Route: 048
     Dates: start: 20131117, end: 20140105
  3. ZOTEPINE [Concomitant]
     Indication: PRODUCT USED FOR UNKNOWN INDICATION
     Dosage: 50 MG MILLIGRAM(S), QD
     Route: 048
     Dates: start: 20131116, end: 20131116
  4. ZOTEPINE [Concomitant]
     Dosage: 150 MG MILLIGRAM(S), QD
     Route: 048
     Dates: start: 20131117, end: 20140110
  5. ZOTEPINE [Concomitant]
     Dosage: 50 MG MILLIGRAM(S), QD
     Route: 048
     Dates: start: 20140123, end: 20140123
  6. ZOTEPINE [Concomitant]
     Dosage: 200 MG MILLIGRAM(S), QD
     Route: 048
     Dates: start: 20140123
  7. LITHIUM CARBONATE [Concomitant]
     Indication: PRODUCT USED FOR UNKNOWN INDICATION
     Dosage: 200 MG MILLIGRAM(S), QD
     Route: 048
     Dates: start: 20131116, end: 20131116
  8. LITHIUM CARBONATE [Concomitant]
     Dosage: 600 MG MILLIGRAM(S), QD
     Route: 048
     Dates: start: 20131117, end: 20140110
  9. LITHIUM CARBONATE [Concomitant]
     Dosage: 600 MG MILLIGRAM(S), QD
     Route: 048
     Dates: start: 20140123
  10. LOXOPROFEN [Concomitant]
     Indication: PRODUCT USED FOR UNKNOWN INDICATION
     Dosage: 60 MG MILLIGRAM(S), QD
     Route: 048
     Dates: start: 20131125
  11. REBAMIPIDE [Concomitant]
     Indication: PRODUCT USED FOR UNKNOWN INDICATION
     Dosage: 100 MG MILLIGRAM(S), QD
     Route: 048
     Dates: start: 20131125
  12. SENNOSIDE [Concomitant]
     Indication: PRODUCT USED FOR UNKNOWN INDICATION
     Dosage: 24-120 MG MILLIGRAM(S), PRN
     Route: 048
     Dates: start: 20131223
  13. NITRAZEPAM [Concomitant]
     Indication: PRODUCT USED FOR UNKNOWN INDICATION
     Dosage: 10 MG MILLIGRAM(S), QD
     Route: 048
     Dates: start: 20131116, end: 20131220
  14. NITRAZEPAM [Concomitant]
     Dosage: 5 MG MILLIGRAM(S), QD
     Route: 048
     Dates: start: 20131221, end: 20140115
  15. NITRAZEPAM [Concomitant]
     Dosage: 5 MG MILLIGRAM(S), QD
     Route: 048
     Dates: start: 20140120
  16. NITRAZEPAM [Concomitant]
     Dosage: 5 MG MILLIGRAM(S), QD
     Route: 048
     Dates: start: 20140122, end: 20140122
  17. NITRAZEPAM [Concomitant]
     Dosage: 5 MG MILLIGRAM(S), QD
     Route: 048
     Dates: start: 20140123, end: 20140123
  18. OLANZAPINE [Concomitant]
     Indication: PRODUCT USED FOR UNKNOWN INDICATION
     Dosage: 10 MG MILLIGRAM(S), QD
     Route: 030
     Dates: start: 20140123, end: 20140123
  19. ZOPICLONE [Concomitant]
     Indication: PRODUCT USED FOR UNKNOWN INDICATION
     Dosage: 7.5 MG MILLIGRAM(S), QD
     Route: 048
     Dates: start: 20140115, end: 20140119
  20. RISPERIDONE [Concomitant]
     Indication: PRODUCT USED FOR UNKNOWN INDICATION
     Dosage: 2 MG MILLIGRAM(S), QD
     Route: 048
     Dates: start: 20140123, end: 20140123
  21. LEVOMEPROMAZINE [Concomitant]
     Indication: PRODUCT USED FOR UNKNOWN INDICATION
     Dosage: 50 MG MILLIGRAM(S), QD
     Route: 048
     Dates: start: 20131116, end: 20131220
  22. PL COMBINATION GRANULES [Concomitant]
     Indication: PRODUCT USED FOR UNKNOWN INDICATION
     Dosage: 3 G GRAM(S), QD
     Route: 048
     Dates: start: 20140123, end: 20140126

REACTIONS (1)
  - Mania [Recovered/Resolved]
